FAERS Safety Report 7135320-3 (Version None)
Quarter: 2010Q4

REPORT INFORMATION
  Report Type: 
  Country: None (occurrence: None)
  Receive Date: 20101203
  Receipt Date: 20101125
  Transmission Date: 20110411
  Serious: Yes (Life-Threatening)
  Sender: FDA-Public Use
  Company Number: B0687151A

PATIENT
  Age: 41 Year
  Sex: Female

DRUGS (7)
  1. HEPTODIN [Suspect]
     Indication: HEPATIC CIRRHOSIS
     Dosage: .1G PER DAY
     Route: 048
     Dates: start: 20101113, end: 20101117
  2. VITAMIN K1 [Concomitant]
  3. CHINESE MEDICINE [Concomitant]
     Indication: JAUNDICE
  4. PANTOPRAZOLE [Concomitant]
  5. TRANSMETIL [Concomitant]
  6. ASPARTIC ACID [Concomitant]
  7. ROCEPHIN [Concomitant]

REACTIONS (6)
  - ABDOMINAL PAIN [None]
  - BLOOD AMYLASE INCREASED [None]
  - HEPATIC ENCEPHALOPATHY [None]
  - HEPATORENAL SYNDROME [None]
  - PANCREATITIS [None]
  - URINE OUTPUT DECREASED [None]
